FAERS Safety Report 5103544-2 (Version None)
Quarter: 2006Q3

REPORT INFORMATION
  Report Type: 
  Country: None (occurrence: None)
  Receive Date: 20060731
  Receipt Date: 20051102
  Transmission Date: 20061208
  Serious: Yes (Other)
  Sender: FDA-Public Use
  Company Number: US-JNJFOC-20051002360

PATIENT
  Age: 35 Year
  Sex: Female

DRUGS (6)
  1. RISPERDAL [Suspect]
     Indication: DRUG USE FOR UNKNOWN INDICATION
     Dosage: 25 MG, INTRAMUSCULAR
     Route: 030
     Dates: start: 20050906
  2. RISPERDAL [Suspect]
     Dosage: 25 MG, INTRAMUSCULAR
     Route: 030
     Dates: start: 20050923
  3. RISPERIDONE [Suspect]
     Indication: DRUG USE FOR UNKNOWN INDICATION
     Dosage: 1.5 MG, 1 IN 1 DAY, ORAL, SEE IMAGE
     Route: 048
     Dates: end: 20050912
  4. RISPERIDONE [Suspect]
     Indication: DRUG USE FOR UNKNOWN INDICATION
     Dosage: 1.5 MG, 1 IN 1 DAY, ORAL, SEE IMAGE
     Route: 048
     Dates: start: 20050912, end: 20050926
  5. RISPERIDONE [Suspect]
     Indication: DRUG USE FOR UNKNOWN INDICATION
     Dosage: 1.5 MG, 1 IN 1 DAY, ORAL, SEE IMAGE
     Route: 048
     Dates: start: 20050822
  6. RISPERIDONE [Suspect]
     Indication: DRUG USE FOR UNKNOWN INDICATION
     Dosage: 1.5 MG, 1 IN 1 DAY, ORAL, SEE IMAGE
     Route: 048
     Dates: start: 20050926

REACTIONS (1)
  - NEUROLEPTIC MALIGNANT SYNDROME [None]
